FAERS Safety Report 17712310 (Version 2)
Quarter: 2020Q2

REPORT INFORMATION
  Report Type: Other
  Country: CA (occurrence: CA)
  Receive Date: 20200427
  Receipt Date: 20200624
  Transmission Date: 20200714
  Serious: Yes (Other)
  Sender: FDA-Public Use
  Company Number: CA-GLENMARK PHARMACEUTICALS-2020GMK047471

PATIENT

DRUGS (9)
  1. AZATHIOPRINE. [Suspect]
     Active Substance: AZATHIOPRINE
     Indication: PRODUCT USED FOR UNKNOWN INDICATION
     Dosage: 125 MILLIGRAM, OD (1 EVERY 1 DAY)
     Route: 048
  2. LANSOPRAZOLE. [Suspect]
     Active Substance: LANSOPRAZOLE
     Indication: PRODUCT USED FOR UNKNOWN INDICATION
     Dosage: 15 MILLIGRAM, QD (1 EVERY 1 DAY)
     Route: 048
  3. SALBUTAMOL SULFATE [Suspect]
     Active Substance: ALBUTEROL SULFATE
     Indication: PRODUCT USED FOR UNKNOWN INDICATION
     Dosage: 100 MICROGRAM, UNK
  4. VITAMIN D                          /00107901/ [Suspect]
     Active Substance: ERGOCALCIFEROL
     Indication: PRODUCT USED FOR UNKNOWN INDICATION
     Dosage: 1000 INTERNATIONAL UNIT, OD (1 EVERY 1 DAY)
     Route: 048
  5. BREO ELLIPTA [Suspect]
     Active Substance: FLUTICASONE FUROATE\VILANTEROL TRIFENATATE
     Indication: PRODUCT USED FOR UNKNOWN INDICATION
     Dosage: 2 DOSAGE FORM, OD (1 EVERY 1 DAY) (FORMULATION: INHALATION)
     Route: 065
  6. CALCIUM [Suspect]
     Active Substance: CALCIUM
     Indication: PRODUCT USED FOR UNKNOWN INDICATION
     Dosage: 500 MILLIGRAM, BID (2 EVERY 1 DAY)
     Route: 048
  7. PREDNISONE. [Suspect]
     Active Substance: PREDNISONE
     Indication: PRODUCT USED FOR UNKNOWN INDICATION
     Dosage: 5 MILLIGRAM, UNK
     Route: 065
  8. GABAPENTIN. [Suspect]
     Active Substance: GABAPENTIN
     Indication: PRODUCT USED FOR UNKNOWN INDICATION
     Dosage: 200 MILLIGRAM, OD (1 EVERY 1 DAY)
     Route: 065
  9. AVAMYS [Suspect]
     Active Substance: FLUTICASONE FUROATE
     Indication: PRODUCT USED FOR UNKNOWN INDICATION
     Dosage: 1 DOSAGE FORM, BID (2 EVERY 1 DAY)
     Route: 065

REACTIONS (29)
  - Wheezing [Unknown]
  - Neuropathy peripheral [Unknown]
  - Sinus disorder [Unknown]
  - Chest pain [Unknown]
  - Eosinophilic granulomatosis with polyangiitis [Unknown]
  - Paranasal sinus hypersecretion [Unknown]
  - Pulmonary mass [Unknown]
  - Anxiety [Unknown]
  - Cough [Unknown]
  - Granulocyte count increased [Unknown]
  - Myocardial oedema [Unknown]
  - Pericardial disease [Unknown]
  - Dyspnoea [Unknown]
  - Cholangitis sclerosing [Unknown]
  - Asthma [Unknown]
  - Blood test abnormal [Unknown]
  - Condition aggravated [Unknown]
  - Electrocardiogram change [Unknown]
  - Gastrooesophageal reflux disease [Unknown]
  - Loss of personal independence in daily activities [Unknown]
  - Pericardial effusion [Unknown]
  - Weight decreased [Unknown]
  - Bloody discharge [Unknown]
  - Therapeutic product effect incomplete [Unknown]
  - Breast adenoma [Unknown]
  - Nasal congestion [Unknown]
  - Subendocardial ischaemia [Unknown]
  - Troponin increased [Unknown]
  - Eosinophil count increased [Unknown]
